FAERS Safety Report 5941634-2 (Version None)
Quarter: 2008Q4

REPORT INFORMATION
  Report Type: 
  Country: None (occurrence: None)
  Receive Date: 20081104
  Receipt Date: 20081104
  Transmission Date: 20090506
  Serious: Yes (Other)
  Sender: FDA-Public Use
  Company Number: None

PATIENT
  Age: 63 Year
  Sex: Female
  Weight: 58.9676 kg

DRUGS (1)
  1. RECLAST [Suspect]
     Indication: OSTEOPOROSIS
     Dosage: 5 MG/100 ML ONCE A YEAR IV
     Route: 042
     Dates: start: 20081029, end: 20081029

REACTIONS (6)
  - CHILLS [None]
  - INFUSION RELATED REACTION [None]
  - MOVEMENT DISORDER [None]
  - PAIN IN EXTREMITY [None]
  - PAIN IN JAW [None]
  - PYREXIA [None]
